FAERS Safety Report 6078486-9 (Version None)
Quarter: 2009Q1

REPORT INFORMATION
  Report Type: 
  Country: None (occurrence: None)
  Receive Date: 20090211
  Receipt Date: 20090211
  Transmission Date: 20090719
  Serious: Yes (Other)
  Sender: FDA-Public Use
  Company Number: None

PATIENT
  Age: 57 Year
  Sex: Female
  Weight: 97.5234 kg

DRUGS (2)
  1. ZOLPIDEM [Suspect]
     Indication: CONTINUOUS POSITIVE AIRWAY PRESSURE
     Dosage: 1 TABLET AT BEDTIME PO, USED 9 TIMES
     Route: 048
     Dates: start: 20090114, end: 20090203
  2. ZOLPIDEM [Suspect]
     Indication: SLEEP APNOEA SYNDROME
     Dosage: 1 TABLET AT BEDTIME PO, USED 9 TIMES
     Route: 048
     Dates: start: 20090114, end: 20090203

REACTIONS (5)
  - ABASIA [None]
  - APHASIA [None]
  - DRUG EFFECT DECREASED [None]
  - FEAR [None]
  - PRODUCT QUALITY ISSUE [None]
